FAERS Safety Report 16544593 (Version 1)
Quarter: 2019Q3

REPORT INFORMATION
  Report Type: Spontaneous
  Country: US (occurrence: US)
  Receive Date: 20190708
  Receipt Date: 20190708
  Transmission Date: 20191004
  Serious: Yes (Hospitalization)
  Sender: FDA-Public Use
  Company Number: None

PATIENT
  Age: 55 Year
  Sex: Female

DRUGS (19)
  1. URSODIOL. [Suspect]
     Active Substance: URSODIOL
     Indication: ENZYME ABNORMALITY
     Route: 048
     Dates: start: 20190121
  2. HUMULIN N [Concomitant]
     Active Substance: INSULIN HUMAN
     Dates: start: 20190413, end: 20190708
  3. ATORVASTATIN 20MG [Concomitant]
     Active Substance: ATORVASTATIN
     Dates: start: 20190520
  4. CICLOPRIX SOL 8% [Concomitant]
  5. TACROLIMUS. [Concomitant]
     Active Substance: TACROLIMUS
     Dates: start: 20190121
  6. SIROLIMUS. [Concomitant]
     Active Substance: SIROLIMUS
     Dates: start: 20190121
  7. WARFARIN 7.5MG [Concomitant]
     Active Substance: WARFARIN
     Dates: start: 20190404
  8. CONTOUR [Concomitant]
     Dates: start: 20190520
  9. INSULIN SYRINGES [Concomitant]
     Active Substance: DEVICE
     Dates: start: 20190522
  10. MULTI-VITAMIN [Concomitant]
     Active Substance: .ALPHA.-TOCOPHEROL ACETATE, DL-\ASCORBIC ACID\CYANOCOBALAMIN\FLUORIDE ION\FOLIC ACID\NIACIN\PYRIDOXINE\RIBOFLAVIN\THIAMINE\VITAMIN A\VITAMIN D
     Dates: start: 20190620
  11. ASPIRIN 81 MG [Concomitant]
     Active Substance: ASPIRIN
     Dates: start: 20190520
  12. ESCITALOPRAM [Concomitant]
     Active Substance: ESCITALOPRAM OXALATE
     Dates: start: 20190620
  13. PREDNISONE. [Concomitant]
     Active Substance: PREDNISONE
     Dates: start: 20190121
  14. MICROLET LANCETS [Concomitant]
     Dates: start: 20190520
  15. AMLODIPINE 10 MG [Concomitant]
     Active Substance: AMLODIPINE BESYLATE
     Dates: start: 20190620
  16. MAGNESIUM OXIDE 400MG [Concomitant]
     Active Substance: MAGNESIUM OXIDE
     Dates: start: 20190119
  17. FISH OIL 1000MG [Concomitant]
     Dates: start: 20190506
  18. ADMELOG 100U/ML [Concomitant]
     Dates: start: 20190618
  19. MELATONIN 3 MG [Concomitant]
     Dates: start: 20190520

REACTIONS (1)
  - Transplant rejection [None]

NARRATIVE: CASE EVENT DATE: 20190614
